FAERS Safety Report 6012022-8 (Version None)
Quarter: 2008Q4

REPORT INFORMATION
  Report Type: 
  Country: None (occurrence: None)
  Receive Date: 20081218
  Receipt Date: 20081027
  Transmission Date: 20090506
  Serious: No
  Sender: FDA-Public Use
  Company Number: US-ASTRAZENECA-2008UW24155

PATIENT
  Age: 749 Month
  Sex: Male

DRUGS (2)
  1. CRESTOR [Suspect]
     Indication: HYPERCHOLESTEROLAEMIA
     Route: 048
     Dates: start: 20080201, end: 20080901
  2. NIACIN [Concomitant]
     Dosage: 2000 MG
     Dates: start: 20080201

REACTIONS (2)
  - MUSCULOSKELETAL PAIN [None]
  - THROMBOSIS [None]
